FAERS Safety Report 12095693 (Version 2)
Quarter: 2016Q4

REPORT INFORMATION
  Report Type: Spontaneous
  Country: US (occurrence: US)
  Receive Date: 20160220
  Receipt Date: 20161229
  Transmission Date: 20170206
  Serious: No
  Sender: FDA-Public Use
  Company Number: US-AUROBINDO-AUR-APU-2015-06323

PATIENT
  Sex: Female

DRUGS (1)
  1. AMOXICILLIN CAPSULES USP 500 MG [Suspect]
     Active Substance: AMOXICILLIN
     Indication: CYSTITIS
     Dosage: 500 MG, TWO TIMES A DAY
     Route: 065
     Dates: start: 20150713

REACTIONS (1)
  - Abdominal pain upper [Recovered/Resolved]
